FAERS Safety Report 12603110 (Version 1)
Quarter: 2016Q3

REPORT INFORMATION
  Report Type: Spontaneous
  Country: DK (occurrence: DK)
  Receive Date: 20160728
  Receipt Date: 20160728
  Transmission Date: 20161109
  Serious: Yes (Hospitalization)
  Sender: FDA-Public Use
  Company Number: PHHY2016DK101590

PATIENT
  Age: 55 Year
  Sex: Female

DRUGS (3)
  1. SPARKAL [Suspect]
     Active Substance: AMILORIDE HYDROCHLORIDE
     Indication: OEDEMA
     Dosage: 1 DF QD STRENGTH: 50 + 5 MG.
     Route: 048
     Dates: start: 201510, end: 20160715
  2. FEXOFENADINE [Concomitant]
     Active Substance: FEXOFENADINE\FEXOFENADINE HYDROCHLORIDE
     Indication: URTICARIA
     Route: 065
  3. FURIX [Concomitant]
     Active Substance: FUROSEMIDE
     Indication: OEDEMA
     Route: 065

REACTIONS (1)
  - Alkalosis hypokalaemic [Unknown]

NARRATIVE: CASE EVENT DATE: 20160715
